FAERS Safety Report 8472784-7 (Version None)
Quarter: 2012Q2

REPORT INFORMATION
  Report Type: 
  Country: None (occurrence: None)
  Receive Date: 20120622
  Receipt Date: 20120622
  Transmission Date: 20120825
  Serious: Yes (Other)
  Sender: FDA-Public Use
  Company Number: None

PATIENT
  Sex: Female

DRUGS (1)
  1. METRONIDAZOLE [Suspect]
     Indication: VAGINAL INFECTION
     Dosage: .75% ONCE A DAY ID
     Route: 023
     Dates: start: 20120508, end: 20120511

REACTIONS (5)
  - CHILLS [None]
  - AURICULAR SWELLING [None]
  - PHARYNGEAL OEDEMA [None]
  - PYREXIA [None]
  - FEELING OF BODY TEMPERATURE CHANGE [None]
